FAERS Safety Report 17508291 (Version 1)
Quarter: 2020Q1

REPORT INFORMATION
  Report Type: Spontaneous
  Country: US (occurrence: US)
  Receive Date: 20200225
  Receipt Date: 20200225
  Transmission Date: 20200409
  Serious: No
  Sender: FDA-Public Use
  Company Number: None

PATIENT
  Age: 62 Year
  Sex: Male

DRUGS (1)
  1. ENBREL [Suspect]
     Active Substance: ETANERCEPT
     Indication: RHEUMATOID ARTHRITIS
     Dosage: ?          OTHER DOSE:1 CART;?
     Route: 058
     Dates: start: 20190719

REACTIONS (4)
  - Fall [None]
  - Rib fracture [None]
  - Ligament sprain [None]
  - Rotator cuff syndrome [None]

NARRATIVE: CASE EVENT DATE: 202001
